FAERS Safety Report 25199431 (Version 2)
Quarter: 2025Q2

REPORT INFORMATION
  Report Type: Report from Study
  Country: US (occurrence: US)
  Receive Date: 20250415
  Receipt Date: 20250528
  Transmission Date: 20250716
  Serious: Yes (Hospitalization, Other)
  Sender: Pyros Pharmaceuticals
  Company Number: US-PYROS PHARMACEUTICALS, INC-2024-PYROSUS000078 PYROS-US000078

PATIENT
  Age: 1 Year
  Sex: Male
  Weight: 9.53 kg

DRUGS (15)
  1. VIGAFYDE [Suspect]
     Active Substance: VIGABATRIN
     Indication: Infantile spasms
     Dates: start: 20240920, end: 202410
  2. VIGAFYDE [Suspect]
     Active Substance: VIGABATRIN
     Dates: start: 202410
  3. VIGAFYDE [Suspect]
     Active Substance: VIGABATRIN
  4. VIGAFYDE [Suspect]
     Active Substance: VIGABATRIN
  5. VIGAFYDE [Suspect]
     Active Substance: VIGABATRIN
     Dates: start: 20250425
  6. ONFI [Suspect]
     Active Substance: CLOBAZAM
     Indication: Generalised tonic-clonic seizure
     Dates: start: 202307
  7. ONFI [Suspect]
     Active Substance: CLOBAZAM
  8. PHENOBARBITAL [Concomitant]
     Active Substance: PHENOBARBITAL
     Indication: Generalised tonic-clonic seizure
     Dates: start: 202305
  9. KEPPRA [Concomitant]
     Active Substance: LEVETIRACETAM
     Indication: Generalised tonic-clonic seizure
     Dates: start: 202305
  10. VITAMIN D3 [Concomitant]
     Active Substance: CHOLECALCIFEROL
     Indication: Product used for unknown indication
     Route: 065
  11. BACTRIM [Concomitant]
     Active Substance: SULFAMETHOXAZOLE\TRIMETHOPRIM
     Indication: Product used for unknown indication
     Route: 065
  12. CLONAZEPAM [Concomitant]
     Active Substance: CLONAZEPAM
     Indication: Product used for unknown indication
     Route: 065
  13. LEVOCARNITINE [Concomitant]
     Active Substance: LEVOCARNITINE
     Indication: Product used for unknown indication
     Route: 065
  14. NITROFURANTOIN [Concomitant]
     Active Substance: NITROFURANTOIN
     Indication: Product used for unknown indication
     Route: 065
  15. SODIUM BICARBONATE [Concomitant]
     Active Substance: SODIUM BICARBONATE
     Indication: Product used for unknown indication
     Route: 065

REACTIONS (10)
  - Increased viscosity of upper respiratory secretion [Not Recovered/Not Resolved]
  - Oxygen saturation decreased [Recovered/Resolved]
  - Increased upper airway secretion [Not Recovered/Not Resolved]
  - Urinary retention [Not Recovered/Not Resolved]
  - Potentiating drug interaction [Unknown]
  - Rhinovirus infection [Recovered/Resolved]
  - Therapeutic product effect incomplete [Recovering/Resolving]
  - Urinary tract infection [Not Recovered/Not Resolved]
  - Somnolence [Recovering/Resolving]
  - Sedation [Recovering/Resolving]

NARRATIVE: CASE EVENT DATE: 20240920
